FAERS Safety Report 13368638 (Version 1)
Quarter: 2017Q1

REPORT INFORMATION
  Report Type: Spontaneous
  Country: US (occurrence: US)
  Receive Date: 20170324
  Receipt Date: 20170324
  Transmission Date: 20170429
  Serious: Yes (Death, Other)
  Sender: FDA-Public Use
  Company Number: US-PFIZER INC-2017124705

PATIENT
  Age: 32 Year
  Sex: Male
  Weight: 113 kg

DRUGS (2)
  1. ALPRAZOLAM. [Suspect]
     Active Substance: ALPRAZOLAM
     Dosage: 1 MG, AS NEEDED, ^PRESCRIBED 2MG 3 TIMES A DAY, 1MG AS NEEDED PER DAY^
     Dates: end: 20150306
  2. ALPRAZOLAM. [Suspect]
     Active Substance: ALPRAZOLAM
     Dosage: 2 MG, 3X/DAY, ^PRESCRIBED 2MG 3 TIMES A DAY, 1MG AS NEEDED PER DAY^
     Dates: end: 20150306

REACTIONS (17)
  - Tongue biting [Unknown]
  - Hyperhidrosis [Unknown]
  - Tremor [Unknown]
  - Diarrhoea [Unknown]
  - Insomnia [Unknown]
  - Metabolic disorder [Unknown]
  - Loss of consciousness [Unknown]
  - Delusion [Unknown]
  - Cardiac arrest [Fatal]
  - Seizure [Unknown]
  - Renal failure [Unknown]
  - Shock [Unknown]
  - Organ failure [Unknown]
  - Vomiting [Unknown]
  - Intentional product misuse [Fatal]
  - Respiratory failure [Unknown]
  - Blood pressure increased [Unknown]

NARRATIVE: CASE EVENT DATE: 20150306
